FAERS Safety Report 10998849 (Version 1)
Quarter: 2015Q2

REPORT INFORMATION
  Report Type: Spontaneous
  Country: US (occurrence: US)
  Receive Date: 20150408
  Receipt Date: 20150408
  Transmission Date: 20150821
  Serious: No
  Sender: FDA-Public Use
  Company Number: US-SA-2014SA053893

PATIENT
  Age: 30 Year
  Sex: Male

DRUGS (1)
  1. ALLEGRA [Suspect]
     Active Substance: FEXOFENADINE HYDROCHLORIDE
     Indication: HYPERSENSITIVITY
     Dosage: DAILY PRN
     Route: 048

REACTIONS (4)
  - Extra dose administered [Unknown]
  - Irritable bowel syndrome [Unknown]
  - Diarrhoea [Unknown]
  - Abdominal pain upper [Unknown]
